FAERS Safety Report 8366590-1 (Version None)
Quarter: 2012Q2

REPORT INFORMATION
  Report Type: 
  Country: None (occurrence: None)
  Receive Date: 20120517
  Receipt Date: 20120511
  Transmission Date: 20120825
  Serious: Yes (Other)
  Sender: FDA-Public Use
  Company Number: GB-BAYER-2012-047164

PATIENT
  Age: 31 Year
  Sex: Female

DRUGS (1)
  1. CLOTRIMAZOLE [Suspect]
     Indication: VULVOVAGINAL CANDIDIASIS

REACTIONS (1)
  - VAGINAL HAEMORRHAGE [None]
